FAERS Safety Report 4758196-8 (Version None)
Quarter: 2005Q3

REPORT INFORMATION
  Report Type: 
  Country: None (occurrence: None)
  Receive Date: 20050826
  Receipt Date: 20050624
  Transmission Date: 20060218
  Serious: No
  Sender: FDA-Public Use
  Company Number: WAES 0506USA03531

PATIENT
  Age: 66 Year
  Sex: Female
  Weight: 89.8122 kg

DRUGS (7)
  1. ZETIA [Suspect]
     Indication: HYPERLIPIDAEMIA
     Dosage: 10 MG/DAILY/PO
     Route: 048
     Dates: start: 20050610, end: 20050618
  2. ZOCOR [Suspect]
     Indication: BLOOD CHOLESTEROL INCREASED
     Dosage: 20 MG/DAILY/PO
     Route: 048
     Dates: start: 20050617, end: 20050618
  3. ACCUPRIL [Concomitant]
  4. MULTIVITAMIN [Concomitant]
  5. STARLIX [Concomitant]
  6. ZANTAC [Concomitant]
  7. ASPIRIN [Concomitant]

REACTIONS (6)
  - ABDOMINAL PAIN [None]
  - ABDOMINAL PAIN UPPER [None]
  - DIZZINESS [None]
  - FLATULENCE [None]
  - GASTRIC DISORDER [None]
  - THROAT IRRITATION [None]
